FAERS Safety Report 12836268 (Version 4)
Quarter: 2016Q4

REPORT INFORMATION
  Report Type: Spontaneous
  Country: US (occurrence: US)
  Receive Date: 20161011
  Receipt Date: 20161108
  Transmission Date: 20170207
  Serious: Yes (Other)
  Sender: FDA-Public Use
  Company Number: US-HORIZON-RAV-0210-2016

PATIENT
  Age: 58 Year
  Sex: Female

DRUGS (2)
  1. PHENERGAN [Concomitant]
     Active Substance: PROMETHAZINE HYDROCHLORIDE
  2. RAVICTI [Suspect]
     Active Substance: GLYCEROL PHENYLBUTYRATE
     Indication: UREA CYCLE ENZYME DEFICIENCY
     Dosage: 3 ML TID
     Route: 048
     Dates: start: 20160804

REACTIONS (6)
  - Lethargy [Unknown]
  - Blood glucose increased [Unknown]
  - Fatigue [Unknown]
  - Malaise [Unknown]
  - Hyperammonaemia [Unknown]
  - Urinary tract infection [Unknown]
